FAERS Safety Report 4826048-0 (Version None)
Quarter: 2005Q4

REPORT INFORMATION
  Report Type: 
  Country: None (occurrence: None)
  Receive Date: 20051014
  Receipt Date: 20050707
  Transmission Date: 20060501
  Serious: No
  Sender: FDA-Public Use
  Company Number: 2005SP001786

PATIENT
  Age: 71 Year
  Sex: Female
  Weight: 51.7101 kg

DRUGS (1)
  1. LUNESTA [Suspect]
     Dosage: 2 MG HS ORAL
     Route: 048
     Dates: start: 20050629, end: 20050724

REACTIONS (1)
  - TINNITUS [None]
